FAERS Safety Report 4423482-8 (Version None)
Quarter: 2004Q3

REPORT INFORMATION
  Report Type: 
  Country: None (occurrence: None)
  Receive Date: 20040806
  Receipt Date: 20040723
  Transmission Date: 20050211
  Serious: Yes (Life-Threatening, Hospitalization)
  Sender: FDA-Public Use
  Company Number: AT-2004-029318

PATIENT
  Age: 59 Year
  Sex: Male

DRUGS (2)
  1. MAGNEVIST [Suspect]
     Indication: ANGIOGRAM
     Dosage: 30 ML, INTRAVENOUS
     Route: 042
     Dates: start: 20040712, end: 20040712
  2. SODIUM CHLORIDE INJ [Concomitant]

REACTIONS (4)
  - CARDIOVASCULAR DISORDER [None]
  - PRURITUS [None]
  - RASH GENERALISED [None]
  - VERTIGO [None]
